FAERS Safety Report 4914306-0 (Version None)
Quarter: 2006Q1

REPORT INFORMATION
  Report Type: 
  Country: None (occurrence: None)
  Receive Date: 20060210
  Receipt Date: 20060125
  Transmission Date: 20060701
  Serious: Yes (Other)
  Sender: FDA-Public Use
  Company Number: 2006012909

PATIENT
  Age: 63 Year
  Sex: Female

DRUGS (6)
  1. RANITIDINE HCL [Suspect]
     Indication: ILL-DEFINED DISORDER
     Dosage: 50 MG (25 MG), INTRAVENOUS
     Route: 042
     Dates: start: 20060105, end: 20060110
  2. CISPLATIN [Suspect]
     Indication: GASTRIC CANCER
     Dosage: 1490 MG, CYCLE 1, 1 IN 28 DAYS, INTRAVENOUS
     Route: 042
     Dates: start: 20060105, end: 20060105
  3. FLUOROURACIL [Suspect]
     Indication: GASTRIC CANCER
     Dosage: 1490 MG, CYCLE 1, 1 IN 28 DAYS, INTRAVENOUS
     Route: 042
     Dates: start: 20060105, end: 20060110
  4. ONDANSETRON [Suspect]
     Indication: PROPHYLAXIS OF NAUSEA AND VOMITING
     Dosage: SEE IMAGE
     Route: 042
     Dates: start: 20060105, end: 20060105
  5. ONDANSETRON [Suspect]
     Indication: PROPHYLAXIS OF NAUSEA AND VOMITING
     Dosage: SEE IMAGE
     Route: 042
     Dates: start: 20060105, end: 20060110
  6. DEXAMETHASONE [Suspect]
     Indication: ILL-DEFINED DISORDER
     Dosage: 20 MG, ONCE, INTRAVENOUS
     Route: 042

REACTIONS (2)
  - DIARRHOEA [None]
  - INFECTION [None]
